FAERS Safety Report 22127681 (Version 3)
Quarter: 2023Q2

REPORT INFORMATION
  Report Type: Spontaneous
  Country: IN (occurrence: IN)
  Receive Date: 20230323
  Receipt Date: 20230418
  Transmission Date: 20230721
  Serious: Yes (Death, Life-Threatening, Hospitalization, Other)
  Sender: FDA-Public Use
  Company Number: IN-MACLEODS PHARMACEUTICALS US LTD-MAC2023040370

PATIENT

DRUGS (2)
  1. SILDENAFIL [Suspect]
     Active Substance: SILDENAFIL
     Indication: Product used for unknown indication
     Dosage: 2 DOSAGE FORM, SINGLE (STRIP OF 3 TABLETS OF SILDENAFIL (50 MG EACH) WAS RECOVERED; OUT OF WHICH TWO
     Route: 048
  2. ALCOHOL [Suspect]
     Active Substance: ALCOHOL
     Indication: Product used for unknown indication
     Dosage: UNK
     Route: 065

REACTIONS (6)
  - Cerebrovascular accident [Fatal]
  - Renal hypertension [Fatal]
  - Hepatic steatosis [Fatal]
  - Ventricular hypertrophy [Fatal]
  - Renal tubular necrosis [Fatal]
  - Cerebral haemorrhage [Fatal]
